FAERS Safety Report 10028795 (Version 2)
Quarter: 2014Q2

REPORT INFORMATION
  Report Type: Spontaneous
  Country: US (occurrence: US)
  Receive Date: 20140321
  Receipt Date: 20140418
  Transmission Date: 20141212
  Serious: Yes (Other)
  Sender: FDA-Public Use
  Company Number: US-ACORDA-ACO_102321_2014

PATIENT
  Sex: Male
  Weight: 108.84 kg

DRUGS (4)
  1. AMPYRA [Suspect]
     Indication: GAIT DISTURBANCE
     Dosage: 10 MG, BID
     Route: 048
     Dates: start: 2010, end: 2014
  2. GILENYA [Suspect]
     Indication: MULTIPLE SCLEROSIS
     Route: 065
  3. ANTIHYPERTENSIVES [Concomitant]
     Indication: BLOOD PRESSURE ABNORMAL
     Dosage: UNK,UNK
     Route: 065
     Dates: start: 2010
  4. LIPITOR [Concomitant]
     Indication: PRODUCT USED FOR UNKNOWN INDICATION
     Dosage: UNK,UNK
     Dates: start: 2012

REACTIONS (6)
  - Myocardial infarction [Recovered/Resolved]
  - Blood pressure abnormal [Unknown]
  - Adverse event [Unknown]
  - Swollen tongue [Recovered/Resolved]
  - Night sweats [Recovered/Resolved]
  - Drooling [Recovered/Resolved]
